FAERS Safety Report 18486486 (Version 1)
Quarter: 2020Q4

REPORT INFORMATION
  Report Type: Spontaneous
  Country: US (occurrence: US)
  Receive Date: 20201110
  Receipt Date: 20201110
  Transmission Date: 20210114
  Serious: Yes (Other)
  Sender: FDA-Public Use
  Company Number: None

PATIENT
  Age: 30 Year
  Sex: Female

DRUGS (2)
  1. BUPRENORPHINE NALOXONE 8-NG TABLETS [Concomitant]
     Active Substance: BUPRENORPHINE\NALOXONE
     Dates: start: 20200924, end: 20201110
  2. BUPRENORPHINE-NALOXONE [Suspect]
     Active Substance: BUPRENORPHINE HYDROCHLORIDE\NALOXONE HYDROCHLORIDE
     Indication: DRUG DEPENDENCE
     Route: 048
     Dates: start: 20200924, end: 20201110

REACTIONS (2)
  - Therapeutic product effect incomplete [None]
  - Product solubility abnormal [None]

NARRATIVE: CASE EVENT DATE: 20201102
